FAERS Safety Report 10069402 (Version 2)
Quarter: 2014Q2

REPORT INFORMATION
  Report Type: Spontaneous
  Country: US (occurrence: US)
  Receive Date: 20140410
  Receipt Date: 20140423
  Transmission Date: 20141212
  Serious: Yes (Hospitalization)
  Sender: FDA-Public Use
  Company Number: US-009507513-1403USA013022

PATIENT
  Age: 59 Year
  Sex: Male

DRUGS (1)
  1. POSACONAZOLE [Suspect]
     Indication: ZYGOMYCOSIS
     Dosage: 200 MG, QID
     Route: 048
     Dates: start: 2009

REACTIONS (2)
  - Nervous system disorder [Unknown]
  - Drug ineffective [Unknown]
